FAERS Safety Report 18351222 (Version 2)
Quarter: 2020Q4

REPORT INFORMATION
  Report Type: Spontaneous
  Country: IT (occurrence: IT)
  Receive Date: 20201006
  Receipt Date: 20201008
  Transmission Date: 20210114
  Serious: Yes (Other)
  Sender: FDA-Public Use
  Company Number: IT-ASTRAZENECA-2020SF26194

PATIENT
  Age: 77 Year
  Sex: Male

DRUGS (7)
  1. BRILIQUE [Suspect]
     Active Substance: TICAGRELOR
     Indication: THROMBOSIS
     Route: 048
  2. RABEPRAZOLE [Concomitant]
     Active Substance: RABEPRAZOLE
     Dosage: 20 MG
     Dates: start: 20190427
  3. LIXIANA [Concomitant]
     Active Substance: EDOXABAN TOSYLATE
     Dosage: 60 MG
     Dates: start: 20190427
  4. CLOPIDOGREL BISULFATE. [Suspect]
     Active Substance: CLOPIDOGREL BISULFATE
     Indication: THROMBOSIS
     Dosage: 75.0MG UNKNOWN
     Route: 065
     Dates: start: 20190427
  5. ACETYLSALICYLIC ACID [Suspect]
     Active Substance: ASPIRIN
     Dosage: 100.0MG UNKNOWN
     Route: 065
     Dates: start: 20190427, end: 20190429
  6. ELIQUIS [Suspect]
     Active Substance: APIXABAN
     Indication: THROMBOSIS
     Route: 065
  7. TIROFIBAN [Concomitant]
     Active Substance: TIROFIBAN
     Indication: THROMBOSIS

REACTIONS (4)
  - Thrombosis [Unknown]
  - Anaemia [Unknown]
  - Off label use [Unknown]
  - Anxiety disorder [Unknown]
